FAERS Safety Report 20167234 (Version 1)
Quarter: 2021Q4

REPORT INFORMATION
  Report Type: Spontaneous
  Country: US (occurrence: US)
  Receive Date: 20211209
  Receipt Date: 20211209
  Transmission Date: 20220303
  Serious: Yes (Other)
  Sender: FDA-Public Use
  Company Number: US-JUBILANT CADISTA PHARMACEUTICALS-2021JUB00126

PATIENT
  Sex: Male
  Weight: 149.66 kg

DRUGS (7)
  1. METHYLPREDNISOLONE [Suspect]
     Active Substance: METHYLPREDNISOLONE
     Indication: Gout
     Dosage: 6 DAY DOSE PACK
     Route: 048
     Dates: start: 2020, end: 2020
  2. METHYLPREDNISOLONE [Suspect]
     Active Substance: METHYLPREDNISOLONE
     Dosage: ^WAS SUPPOSED TO BE 6,5,4,3,2,1^
     Route: 048
     Dates: start: 20210422, end: 20210426
  3. DEXAMETHASONE [Suspect]
     Active Substance: DEXAMETHASONE
     Indication: Gout
     Dosage: UNK
     Dates: start: 202102
  4. UNSPECIFIED INGREDIENT [Suspect]
     Active Substance: UNSPECIFIED INGREDIENT
     Indication: Gout
     Dosage: UNK
     Dates: start: 202102
  5. ALLOPURINOL [Concomitant]
     Active Substance: ALLOPURINOL
  6. IBUPROFEN [Concomitant]
     Active Substance: IBUPROFEN
  7. HERBALS\MITRAGYNINE [Concomitant]
     Active Substance: HERBALS\MITRAGYNINE

REACTIONS (11)
  - Blood pressure increased [Recovering/Resolving]
  - Malaise [Recovering/Resolving]
  - Drug ineffective [Recovered/Resolved]
  - Musculoskeletal stiffness [Recovering/Resolving]
  - Myalgia [Recovering/Resolving]
  - Vitamin D decreased [Unknown]
  - Red blood cell sedimentation rate increased [Unknown]
  - Neuralgia [Recovering/Resolving]
  - Headache [Recovered/Resolved]
  - Blood sodium increased [Unknown]
  - Hyperhidrosis [Recovering/Resolving]

NARRATIVE: CASE EVENT DATE: 20200101
